APPROVED DRUG PRODUCT: MINOCYCLINE HYDROCHLORIDE
Active Ingredient: MINOCYCLINE HYDROCHLORIDE
Strength: EQ 50MG BASE
Dosage Form/Route: CAPSULE;ORAL
Application: A063011 | Product #001 | TE Code: AB
Applicant: ZYDUS WORLDWIDE DMCC
Approved: Mar 2, 1992 | RLD: No | RS: No | Type: RX